FAERS Safety Report 6094712-4 (Version None)
Quarter: 2009Q1

REPORT INFORMATION
  Report Type: 
  Country: None (occurrence: None)
  Receive Date: 20090226
  Receipt Date: 20090219
  Transmission Date: 20090719
  Serious: Yes (Other)
  Sender: FDA-Public Use
  Company Number: US-AMGEN-QUU334619

PATIENT
  Sex: Female

DRUGS (10)
  1. EPOGEN [Suspect]
     Indication: DIALYSIS
     Route: 065
     Dates: start: 20080201, end: 20081229
  2. FOLIC ACID [Concomitant]
  3. LISINOPRIL [Concomitant]
  4. NIFEDIPINE [Concomitant]
  5. VITAMIN B-12 [Concomitant]
  6. PENICILLIN V [Concomitant]
  7. RENAGEL [Concomitant]
  8. PERCOCET [Concomitant]
  9. ALLOPURINOL [Concomitant]
  10. FLEXERIL [Concomitant]

REACTIONS (1)
  - HAEMOGLOBIN DECREASED [None]
